FAERS Safety Report 26199348 (Version 1)
Quarter: 2025Q4

REPORT INFORMATION
  Report Type: Spontaneous
  Country: US (occurrence: US)
  Receive Date: 20251225
  Receipt Date: 20251225
  Transmission Date: 20260117
  Serious: No
  Sender: GLAXOSMITHKLINE
  Company Number: US-GSK-US2025AMR093080

PATIENT
  Sex: Female
  Weight: 62.585 kg

DRUGS (1)
  1. BENLYSTA [Suspect]
     Active Substance: BELIMUMAB
     Indication: Systemic lupus erythematosus
     Dosage: 200 MG, WE, (1MLX4)
     Dates: start: 20250710, end: 20250731

REACTIONS (3)
  - Fatigue [Unknown]
  - Migraine [Unknown]
  - Feeling jittery [Unknown]
